FAERS Safety Report 9107140 (Version 1)
Quarter: 2013Q1

REPORT INFORMATION
  Report Type: Spontaneous
  Country: DK (occurrence: CA)
  Receive Date: 20130221
  Receipt Date: 20130221
  Transmission Date: 20140127
  Serious: Yes (Hospitalization)
  Sender: FDA-Public Use
  Company Number: CA-FRI-S03-CAN-04260-01

PATIENT
  Sex: Female
  Weight: 68 kg

DRUGS (2)
  1. CELEXA [Suspect]
     Indication: OBSESSIVE-COMPULSIVE DISORDER
     Dosage: 20 MG
     Route: 048
     Dates: start: 20030420
  2. CELEXA [Suspect]
     Indication: ANXIETY

REACTIONS (2)
  - Self-injurious ideation [Unknown]
  - Off label use [Unknown]
